FAERS Safety Report 10544570 (Version 2)
Quarter: 2015Q1

REPORT INFORMATION
  Report Type: Spontaneous
  Country: US (occurrence: None)
  Receive Date: 20141020
  Receipt Date: 20150120
  Transmission Date: 20150720
  Serious: No
  Sender: FDA-Public Use
  Company Number: AEGR000563

PATIENT
  Age: 52 Year
  Sex: Male
  Weight: 98.9 kg

DRUGS (10)
  1. ASPIRIN (ACETYLSALICYLIC ACID) [Concomitant]
     Active Substance: ASPIRIN
  2. OMEGA 3 6 9 (OMEGA 9 FATTY ACIDS, OMEGA-3 FATTY ACIDS, OMEGA-6 FATTY ACIDS) [Concomitant]
  3. VITAMIN E (TOCOPHERYL ACETATE) [Concomitant]
  4. HYDROCODONE (HYDROCODONE) [Suspect]
     Active Substance: HYDROCODONE
     Indication: PAIN
  5. FOLIC ACID (FOLIC ACID) [Concomitant]
     Active Substance: FOLIC ACID
  6. VITAMIN C [Concomitant]
     Active Substance: ASCORBIC ACID
  7. JUXTAPID [Suspect]
     Active Substance: LOMITAPIDE MESYLATE
     Indication: TYPE IIA HYPERLIPIDAEMIA
     Route: 048
     Dates: start: 20140519
  8. ATENOLOL (ATENOLOL) [Concomitant]
     Active Substance: ATENOLOL
  9. SIMVASTATIN (SIMVASTATIN) [Concomitant]
     Active Substance: SIMVASTATIN
  10. HYDROCODONE BITARTRATE AND ACETAMINOPHEN [Concomitant]
     Active Substance: ACETAMINOPHEN\HYDROCODONE BITARTRATE

REACTIONS (6)
  - Diarrhoea [None]
  - Abdominal discomfort [None]
  - Balance disorder [None]
  - Aphagia [None]
  - Weight decreased [None]
  - Constipation [None]

NARRATIVE: CASE EVENT DATE: 20140611
